FAERS Safety Report 8836624 (Version 2)
Quarter: 2013Q1

REPORT INFORMATION
  Report Type: Spontaneous
  Country: GB (occurrence: None)
  Receive Date: 20121010
  Receipt Date: 20121102
  Transmission Date: 20140127
  Serious: Yes (Other)
  Sender: FDA-Public Use
  Company Number: VAL_00893_2012

PATIENT
  Age: 31 Year
  Sex: Male

DRUGS (2)
  1. METOPROLOL [Suspect]
     Indication: PRODUCT USED FOR UNKNOWN INDICATION
     Route: 048
  2. METOPROLOL [Suspect]
     Indication: VENTRICULAR FIBRILLATION
     Route: 048

REACTIONS (5)
  - Ventricular extrasystoles [None]
  - Ventricular extrasystoles [None]
  - Ventricular tachycardia [None]
  - Arrhythmia [None]
  - No therapeutic response [None]
